FAERS Safety Report 9036865 (Version 1)
Quarter: 2012Q4

REPORT INFORMATION
  Report Type: Spontaneous
  Country: CA (occurrence: None)
  Receive Date: 20121211
  Receipt Date: 20121211
  Transmission Date: 20130627
  Serious: Yes (Hospitalization)
  Sender: FDA-Public Use
  Company Number: 2012034181

PATIENT
  Age: 10 Year
  Sex: Female

DRUGS (3)
  1. PRIVIGEN (IMMUNE GLOBULIN INTRAVENOUS (HUMAN) 10% LIQUID) [Suspect]
     Dosage: 30 g total, intravenous (not otherwise specified)
     Route: 042
  2. CLONAZEPAM (CLONAZEPAM) [Concomitant]
  3. LAMOTRIGINE (LAMIOTRIGINE) [Concomitant]

REACTIONS (5)
  - Irritability [None]
  - Lethargy [None]
  - Rash macular [None]
  - Pyrexia [None]
  - Vomiting [None]
